FAERS Safety Report 5732406-2 (Version None)
Quarter: 2008Q2

REPORT INFORMATION
  Report Type: 
  Country: None (occurrence: None)
  Receive Date: 20080508
  Receipt Date: 20080428
  Transmission Date: 20081010
  Serious: Yes (Other)
  Sender: FDA-Public Use
  Company Number: DE-PFIZER INC-2008038077

PATIENT
  Sex: Female

DRUGS (1)
  1. SUTENT [Suspect]
     Dosage: DAILY DOSE:37.5MG
     Route: 048

REACTIONS (3)
  - DIARRHOEA [None]
  - SKIN ULCER [None]
  - VOMITING [None]
